FAERS Safety Report 25953298 (Version 3)
Quarter: 2025Q4

REPORT INFORMATION
  Report Type: Spontaneous
  Country: US (occurrence: US)
  Receive Date: 20251023
  Receipt Date: 20251124
  Transmission Date: 20260118
  Serious: No
  Sender: PFIZER
  Company Number: US-PFIZER INC-PV202400076167

PATIENT
  Age: 9 Year
  Sex: Male
  Weight: 32.1 kg

DRUGS (2)
  1. GENOTROPIN [Suspect]
     Active Substance: SOMATROPIN
     Indication: Growth hormone deficiency
     Dosage: 0.8 MG/DAY 7 DAYS/WK
     Route: 058
     Dates: start: 20240404
  2. GENOTROPIN [Suspect]
     Active Substance: SOMATROPIN
     Indication: Hypopituitarism
     Dosage: 1.4 MG/DAY 7 DAYS/WEEK
     Route: 058

REACTIONS (1)
  - Device defective [Unknown]
